FAERS Safety Report 11052711 (Version 1)
Quarter: 2015Q2

REPORT INFORMATION
  Report Type: Spontaneous
  Country: IN (occurrence: None)
  Receive Date: 20150417
  Receipt Date: 20150417
  Transmission Date: 20150821
  Serious: Yes (Hospitalization)
  Sender: FDA-Public Use
  Company Number: 2015SCAL0000037

PATIENT
  Age: 29 Year
  Sex: Female

DRUGS (4)
  1. CLOZAPINE. [Concomitant]
     Active Substance: CLOZAPINE
  2. FLUOXETINE HYDROCHLORIDE. [Suspect]
     Active Substance: FLUOXETINE HYDROCHLORIDE
     Indication: DEPRESSIVE SYMPTOM
  3. AMISULPIRIDE [Concomitant]
  4. VALPROATE [Concomitant]
     Active Substance: VALPROATE SODIUM

REACTIONS (7)
  - Psychiatric symptom [None]
  - Dyspnoea exertional [None]
  - Condition aggravated [None]
  - Pulmonary hypertension [None]
  - Tricuspid valve incompetence [None]
  - Left ventricular hypertrophy [None]
  - Mitral valve incompetence [None]
